FAERS Safety Report 19056815 (Version 1)
Quarter: 2021Q1

REPORT INFORMATION
  Report Type: Report from Study
  Country: FR (occurrence: FR)
  Receive Date: 20210325
  Receipt Date: 20210325
  Transmission Date: 20210420
  Serious: Yes (Other)
  Sender: FDA-Public Use
  Company Number: FR-SUN PHARMACEUTICAL INDUSTRIES LTD-2021R1-287478

PATIENT

DRUGS (3)
  1. TEMOZOLOMIDE. [Suspect]
     Active Substance: TEMOZOLOMIDE
     Indication: CENTRAL NERVOUS SYSTEM LYMPHOMA
     Dosage: 100 MG/M2 OR 150 MG/M2 (DAY 1 TO 5 FOR CYCLE 1)
     Route: 048
  2. IBRUTINIB [Concomitant]
     Active Substance: IBRUTINIB
     Indication: CENTRAL NERVOUS SYSTEM LYMPHOMA
     Dosage: 560 MILLIGRAM, QD (28?DAY CYCLES)
     Route: 048
  3. TEMOZOLOMIDE. [Suspect]
     Active Substance: TEMOZOLOMIDE
     Dosage: 200 MILLIGRAM/SQ. METER (DAY 1 TO 5 FROM CYCLE 2)

REACTIONS (3)
  - Asthenia [Unknown]
  - Nausea [Unknown]
  - Bronchitis [Unknown]
